FAERS Safety Report 6006797-1 (Version None)
Quarter: 2008Q4

REPORT INFORMATION
  Report Type: 
  Country: None (occurrence: None)
  Receive Date: 20081217
  Receipt Date: 20080221
  Transmission Date: 20090506
  Serious: No
  Sender: FDA-Public Use
  Company Number: US-ASTRAZENECA-2004UW10843

PATIENT
  Age: 79 Year
  Sex: Female
  Weight: 41.8 kg

DRUGS (8)
  1. CRESTOR [Suspect]
     Indication: BLOOD CHOLESTEROL INCREASED
     Route: 048
  2. CRESTOR [Suspect]
     Indication: HIGH DENSITY LIPOPROTEIN INCREASED
     Route: 048
  3. CRESTOR [Suspect]
     Route: 048
  4. CRESTOR [Suspect]
     Route: 048
  5. CRESTOR [Suspect]
     Route: 048
  6. CRESTOR [Suspect]
     Route: 048
  7. ANTIVERT [Concomitant]
  8. TYLENOL (CAPLET) [Concomitant]

REACTIONS (7)
  - DIARRHOEA [None]
  - FEELING ABNORMAL [None]
  - HAEMATURIA [None]
  - NAUSEA [None]
  - PRURITUS [None]
  - URTICARIA [None]
  - VIRAL INFECTION [None]
